FAERS Safety Report 14838170 (Version 3)
Quarter: 2018Q3

REPORT INFORMATION
  Report Type: Spontaneous
  Country: DE (occurrence: DE)
  Receive Date: 20180502
  Receipt Date: 20180820
  Transmission Date: 20181010
  Serious: Yes (Other)
  Sender: FDA-Public Use
  Company Number: DE-JNJFOC-20180424146

PATIENT
  Age: 64 Year
  Sex: Male
  Weight: 100.7 kg

DRUGS (17)
  1. IBUPROFEN. [Suspect]
     Active Substance: IBUPROFEN
     Route: 048
  2. IBUPROFEN. [Suspect]
     Active Substance: IBUPROFEN
     Indication: INTERVERTEBRAL DISC DISORDER
     Route: 048
     Dates: start: 201508
  3. PLACEBO [Suspect]
     Active Substance: UNSPECIFIED INGREDIENT
     Indication: TYPE 2 DIABETES MELLITUS
     Route: 058
     Dates: start: 20160127, end: 20160217
  4. HYDROCHLOROTHIAZIDE. [Concomitant]
     Active Substance: HYDROCHLOROTHIAZIDE
     Indication: HYPERTENSION
     Route: 048
     Dates: start: 2013
  5. ALBIGLUTIDE [Suspect]
     Active Substance: ALBIGLUTIDE
     Indication: TYPE 2 DIABETES MELLITUS
     Route: 058
     Dates: start: 20160127, end: 20160217
  6. METFORMIN [Concomitant]
     Active Substance: METFORMIN HYDROCHLORIDE
     Indication: TYPE 2 DIABETES MELLITUS
     Dosage: 1000 MG, BID
     Route: 048
     Dates: start: 200909, end: 20170104
  7. BISOPROLOL [Concomitant]
     Active Substance: BISOPROLOL
     Indication: HYPERTENSION
     Dosage: 5 MG, 1D
     Route: 048
     Dates: start: 2013, end: 20170209
  8. CITALOPRAM [Concomitant]
     Active Substance: CITALOPRAM HYDROBROMIDE
     Indication: DEPRESSION
     Dosage: 10 MG, 1D
     Route: 048
     Dates: start: 20141217
  9. SIMVASTATIN. [Concomitant]
     Active Substance: SIMVASTATIN
     Indication: HYPERLIPIDAEMIA
     Dosage: 40 MG, 1D
     Route: 048
     Dates: start: 20141217, end: 20170209
  10. INSULIN [Concomitant]
     Active Substance: INSULIN NOS
     Indication: TYPE 2 DIABETES MELLITUS
     Dosage: 33 IU, TID
     Route: 058
     Dates: start: 2017
  11. MAGNESIUM [Concomitant]
     Active Substance: MAGNESIUM
     Indication: MUSCLE SPASMS
     Dosage: 300 MG, 1D
     Route: 048
     Dates: start: 20141217, end: 20170424
  12. FENTANYL. [Concomitant]
     Active Substance: FENTANYL
     Indication: INTERVERTEBRAL DISC DISORDER
     Dosage: 0.83 UG/MIN, CO
     Route: 062
     Dates: start: 20140217
  13. NOVAMINSULFON [Suspect]
     Active Substance: METAMIZOLE
     Indication: INTERVERTEBRAL DISC DISORDER
     Dosage: 500 MG, UNK
     Route: 048
     Dates: start: 20141217
  14. EMPAGLIFLOZIN [Concomitant]
     Active Substance: EMPAGLIFLOZIN
     Indication: TYPE 2 DIABETES MELLITUS
     Dosage: 10 MG, 1D
     Route: 048
     Dates: start: 20160303, end: 20170105
  15. TAMSULOZIN [Concomitant]
     Indication: PROPHYLAXIS
     Dosage: 0.4 MG, 1D
     Route: 048
     Dates: start: 20160427
  16. RAMIPRIL. [Concomitant]
     Active Substance: RAMIPRIL
     Indication: HYPERTENSION
     Dosage: 10 MG, 1D
     Route: 048
     Dates: start: 2013, end: 20170329
  17. INSULIN LISPRO [Concomitant]
     Active Substance: INSULIN LISPRO
     Indication: TYPE 2 DIABETES MELLITUS
     Route: 058
     Dates: start: 2014, end: 20160511

REACTIONS (2)
  - Gastritis erosive [Recovered/Resolved]
  - Melaena [Recovered/Resolved]

NARRATIVE: CASE EVENT DATE: 20161030
